FAERS Safety Report 4897222-2 (Version None)
Quarter: 2005Q4

REPORT INFORMATION
  Report Type: 
  Country: None (occurrence: None)
  Receive Date: 20051223
  Receipt Date: 20051019
  Transmission Date: 20060501
  Serious: No
  Sender: FDA-Public Use
  Company Number: 05P-163-0314523-00

PATIENT
  Age: 69 Year
  Sex: Female
  Weight: 74.8435 kg

DRUGS (9)
  1. HUMIRA [Suspect]
     Indication: RHEUMATOID ARTHRITIS
     Dosage: 40 MG, 1 IN 2 WK, SUBCUTANEOUS
     Route: 058
     Dates: start: 20041114
  2. METHOTREXATE [Concomitant]
  3. LISINOPRIL [Concomitant]
  4. LEVOTHYROXINE SODIUM [Concomitant]
  5. SUCRALFATE [Concomitant]
  6. ESTROPIP [Concomitant]
  7. FOLIC ACID [Concomitant]
  8. MULTIVITAMIN [Concomitant]
  9. CALCIUM GLUCONATE [Concomitant]

REACTIONS (1)
  - INJECTION SITE PAIN [None]
